FAERS Safety Report 9772469 (Version 1)
Quarter: 2013Q4

REPORT INFORMATION
  Report Type: Spontaneous
  Country: US (occurrence: None)
  Receive Date: 20131218
  Receipt Date: 20131218
  Transmission Date: 20140711
  Serious: No
  Sender: FDA-Public Use
  Company Number: None

PATIENT
  Age: 54 Year
  Sex: Female
  Weight: 54 kg

DRUGS (2)
  1. IXABEPILONE [Suspect]
     Indication: BREAST CANCER
     Dosage: BID , DAYS 1-14, EVERY 3 WEEKS  PO
  2. CAPECITABINE [Suspect]

REACTIONS (1)
  - Eosinophilic pneumonia [None]
